FAERS Safety Report 16234095 (Version 3)
Quarter: 2019Q2

REPORT INFORMATION
  Report Type: Spontaneous
  Country: US (occurrence: US)
  Receive Date: 20190424
  Receipt Date: 20190514
  Transmission Date: 20190711
  Serious: Yes (Hospitalization, Other)
  Sender: FDA-Public Use
  Company Number: US-SAOL THERAPEUTICS-2019SAO00144

PATIENT
  Age: 61 Year
  Sex: Female
  Weight: 65.76 kg

DRUGS (1)
  1. LIORESAL [Suspect]
     Active Substance: BACLOFEN
     Dosage: 200 ?G, \DAY
     Route: 037

REACTIONS (4)
  - Therapy non-responder [Unknown]
  - Gastrointestinal surgery [Unknown]
  - Device dislocation [Recovered/Resolved]
  - Gastrointestinal procedural complication [Unknown]

NARRATIVE: CASE EVENT DATE: 20190107
